FAERS Safety Report 5495030-5 (Version None)
Quarter: 2007Q4

REPORT INFORMATION
  Report Type: 
  Country: None (occurrence: None)
  Receive Date: 20071024
  Receipt Date: 20071010
  Transmission Date: 20080405
  Serious: Yes (Other)
  Sender: FDA-Public Use
  Company Number: JP-SHR-JP-2007-039627

PATIENT
  Age: 46 Year
  Sex: Female

DRUGS (6)
  1. FLUDARA [Suspect]
     Indication: ALLOGENIC BONE MARROW TRANSPLANTATION THERAPY
     Route: 042
  2. CYCLOSPORINE [Concomitant]
     Indication: LUPUS NEPHRITIS
  3. CAMPATH [Concomitant]
     Indication: ALLOGENIC BONE MARROW TRANSPLANTATION THERAPY
  4. CYCLOPHOSPHAMIDE [Concomitant]
     Indication: ALLOGENIC BONE MARROW TRANSPLANTATION THERAPY
  5. CYCLOSPORINE [Concomitant]
     Indication: PROPHYLAXIS
  6. MTX [Concomitant]
     Indication: PROPHYLAXIS

REACTIONS (1)
  - THROMBOTIC MICROANGIOPATHY [None]
